FAERS Safety Report 8339922-8 (Version None)
Quarter: 2012Q2

REPORT INFORMATION
  Report Type: 
  Country: None (occurrence: None)
  Receive Date: 20120507
  Receipt Date: 20090206
  Transmission Date: 20120825
  Serious: No
  Sender: FDA-Public Use
  Company Number: US-TEVA-2009000059

PATIENT
  Sex: Female
  Weight: 87.168 kg

DRUGS (6)
  1. ZOFRAN [Concomitant]
     Indication: NAUSEA
  2. TREANDA [Suspect]
     Indication: NON-HODGKIN'S LYMPHOMA
  3. BENADRYL [Concomitant]
     Indication: PREMEDICATION
  4. TREANDA [Suspect]
     Indication: CHRONIC LYMPHOCYTIC LEUKAEMIA
     Dosage: 7.1429 MILLIGRAM;
     Route: 042
     Dates: start: 20081124
  5. ZOFRAN [Concomitant]
     Indication: VOMITING
  6. DEXAMETHASONE [Concomitant]
     Indication: PREMEDICATION

REACTIONS (1)
  - RASH PRURITIC [None]
